FAERS Safety Report 8604168-2 (Version None)
Quarter: 2012Q3

REPORT INFORMATION
  Report Type: 
  Country: None (occurrence: None)
  Receive Date: 20120806
  Receipt Date: 20120724
  Transmission Date: 20120928
  Serious: Yes (Other)
  Sender: FDA-Public Use
  Company Number: 2012MA008992

PATIENT
  Sex: Male

DRUGS (3)
  1. ACENOCOUMAROL [Concomitant]
  2. DICLOFENAC SODIUM DELAYED-RELEASE TABLETS, 75 MG (PUREPAC) (DICLOFENAC [Suspect]
     Indication: ARTHRALGIA
     Dosage: 75 MG;BID
     Dates: start: 20111007
  3. OMEPRAZOLE [Concomitant]

REACTIONS (2)
  - CORNEAL DISORDER [None]
  - HALLUCINATION [None]
